FAERS Safety Report 4417815-6 (Version None)
Quarter: 2004Q3

REPORT INFORMATION
  Report Type: 
  Country: None (occurrence: None)
  Receive Date: 20040803
  Receipt Date: 20040720
  Transmission Date: 20050211
  Serious: Yes (Death)
  Sender: FDA-Public Use
  Company Number: 2004PK00820

PATIENT
  Sex: Male

DRUGS (1)
  1. NAROPIN [Suspect]
     Indication: ANAESTHESIA
     Dosage: 240 MG DAILY PNEU

REACTIONS (6)
  - BRADYCARDIA [None]
  - BRAIN DEATH [None]
  - CARDIAC ARREST [None]
  - CONVULSION [None]
  - MEDICATION ERROR [None]
  - TACHYCARDIA [None]
